FAERS Safety Report 9521300 (Version 1)
Quarter: 2013Q3

REPORT INFORMATION
  Report Type: Spontaneous
  Country: US (occurrence: US)
  Receive Date: 20130913
  Receipt Date: 20130913
  Transmission Date: 20140515
  Serious: Yes (Hospitalization, Other)
  Sender: FDA-Public Use
  Company Number: US-009507513-1309USA004888

PATIENT
  Age: 72 Year
  Sex: Female

DRUGS (12)
  1. JANUMET [Suspect]
     Indication: DIABETES MELLITUS
     Dosage: DOSE:50/500MG FREQUENCY UNSPECIFIED.THERAPY STARTED :TWO YEARS AGO.
     Route: 048
     Dates: start: 2011, end: 2013
  2. LYRICA [Concomitant]
     Dosage: 75 MG, BID
  3. GLIMEPIRIDE [Concomitant]
     Dosage: 2 MG, QD
  4. METFORMIN [Concomitant]
     Dosage: 500 MG, BID
  5. METOPROLOL [Concomitant]
     Dosage: 50 MG, BID
  6. ENALAPRIL MALEATE [Concomitant]
     Dosage: 2.5 MG, QD
  7. LIPITOR [Concomitant]
     Dosage: 20 MG, QD
  8. VITAMIN D (UNSPECIFIED) [Concomitant]
     Dosage: 5000 UNITS,TWICE A WEEK
  9. NABUMETONE [Concomitant]
     Dosage: 500 MG, QD
  10. FAMOTIDINE [Concomitant]
     Dosage: 20 MG, BID
  11. PLAVIX [Concomitant]
     Dosage: 75 MG, QD
  12. TORSEMIDE [Concomitant]
     Dosage: 20 MG, QD

REACTIONS (1)
  - Pancreatitis [Unknown]
